FAERS Safety Report 11843966 (Version 1)
Quarter: 2015Q4

REPORT INFORMATION
  Report Type: Spontaneous
  Country: US (occurrence: US)
  Receive Date: 20151217
  Receipt Date: 20151217
  Transmission Date: 20160305
  Serious: Yes (Other)
  Sender: FDA-Public Use
  Company Number: US-JNJFOC-20151204038

PATIENT

DRUGS (2)
  1. PEPCID AC [Suspect]
     Active Substance: FAMOTIDINE
     Route: 065
  2. PEPCID AC [Suspect]
     Active Substance: FAMOTIDINE
     Indication: PRODUCT USED FOR UNKNOWN INDICATION
     Dosage: STRENGTH 10 MG
     Route: 065

REACTIONS (5)
  - Crohn^s disease [Unknown]
  - Myocardial infarction [Unknown]
  - Blood pressure increased [Unknown]
  - Headache [Unknown]
  - Bone disorder [Unknown]
